FAERS Safety Report 13865525 (Version 1)
Quarter: 2017Q3

REPORT INFORMATION
  Report Type: Spontaneous
  Country: US (occurrence: US)
  Receive Date: 20170814
  Receipt Date: 20170814
  Transmission Date: 20171127
  Serious: No
  Sender: FDA-Public Use
  Company Number: US-LEXICON PHARMACEUTICALS, INC-17-1606-00650

PATIENT
  Age: 52 Year
  Sex: Male

DRUGS (3)
  1. TELOTRISTAT ETHYL [Suspect]
     Active Substance: TELOTRISTAT ETHYL
     Indication: CARCINOID TUMOUR
     Route: 048
     Dates: start: 2017
  2. SANDOSTATIN LAR DEPOT [Concomitant]
     Active Substance: OCTREOTIDE ACETATE
  3. AFINITOR [Concomitant]
     Active Substance: EVEROLIMUS
     Dates: start: 2017

REACTIONS (3)
  - Diarrhoea [Not Recovered/Not Resolved]
  - Nephrolithiasis [Recovered/Resolved]
  - Nausea [Not Recovered/Not Resolved]

NARRATIVE: CASE EVENT DATE: 2017
